FAERS Safety Report 18418164 (Version 9)
Quarter: 2021Q3

REPORT INFORMATION
  Report Type: Other
  Country: DE (occurrence: DE)
  Receive Date: 20201023
  Receipt Date: 20210920
  Transmission Date: 20211014
  Serious: Yes (Hospitalization, Other)
  Sender: FDA-Public Use
  Company Number: DE-ROCHE-2623404

PATIENT
  Age: 54 Year
  Sex: Female

DRUGS (16)
  1. OCREVUS [Suspect]
     Active Substance: OCRELIZUMAB
     Route: 042
     Dates: start: 20200528
  2. OCREVUS [Suspect]
     Active Substance: OCRELIZUMAB
     Route: 042
  3. L?THYROX [Concomitant]
     Active Substance: LEVOTHYROXINE SODIUM
  4. OCREVUS [Suspect]
     Active Substance: OCRELIZUMAB
     Route: 042
     Dates: start: 202012
  5. COVID?19 VACCINE NOS. [Suspect]
     Active Substance: COVID-19 VACCINE NOS
     Indication: COVID-19 PROPHYLAXIS
     Route: 065
  6. PANTOPRAZOL [Concomitant]
     Active Substance: PANTOPRAZOLE SODIUM
  7. AMITRIPTYLIN [Concomitant]
     Active Substance: AMITRIPTYLINE
  8. NOVAMINSULFON [Concomitant]
     Active Substance: METAMIZOLE
  9. OCREVUS [Suspect]
     Active Substance: OCRELIZUMAB
     Indication: RELAPSING-REMITTING MULTIPLE SCLEROSIS
     Route: 042
     Dates: start: 20200513
  10. CORTISONE [Concomitant]
     Active Substance: CORTISONE
  11. OCREVUS [Suspect]
     Active Substance: OCRELIZUMAB
     Route: 042
     Dates: start: 20210712
  12. NOVAMIN [PROCHLORPERAZINE] [Suspect]
     Active Substance: PROCHLORPERAZINE
     Indication: PRODUCT USED FOR UNKNOWN INDICATION
     Route: 065
  13. CALCIUM [Concomitant]
     Active Substance: CALCIUM
  14. GABAPENTIN. [Concomitant]
     Active Substance: GABAPENTIN
  15. TAVEGIL [Concomitant]
     Active Substance: CLEMASTINE FUMARATE
  16. TILIDINE [Concomitant]
     Active Substance: TILIDINE

REACTIONS (23)
  - Vulvovaginal inflammation [Not Recovered/Not Resolved]
  - Neurodermatitis [Recovered/Resolved]
  - Stress fracture [Recovering/Resolving]
  - Uhthoff^s phenomenon [Not Recovered/Not Resolved]
  - Stress at work [Not Recovered/Not Resolved]
  - Uterine inflammation [Not Recovered/Not Resolved]
  - Muscle spasticity [Recovered/Resolved]
  - Throat irritation [Recovered/Resolved]
  - Headache [Recovered/Resolved]
  - Multiple sclerosis relapse [Recovering/Resolving]
  - Intervertebral disc protrusion [Not Recovered/Not Resolved]
  - White blood cell count increased [Recovered/Resolved]
  - Melanocytic naevus [Not Recovered/Not Resolved]
  - Thyroid function test abnormal [Not Recovered/Not Resolved]
  - Limb discomfort [Unknown]
  - C-reactive protein increased [Not Recovered/Not Resolved]
  - Pharyngitis [Recovered/Resolved]
  - Hypotension [Recovered/Resolved]
  - Gout [Recovered/Resolved]
  - Vulval abscess [Not Recovered/Not Resolved]
  - Fatigue [Recovered/Resolved]
  - Asthenia [Unknown]
  - Joint injury [Not Recovered/Not Resolved]

NARRATIVE: CASE EVENT DATE: 20200513
